FAERS Safety Report 4350274-0 (Version None)
Quarter: 2004Q2

REPORT INFORMATION
  Report Type: 
  Country: None (occurrence: None)
  Receive Date: 20040426
  Receipt Date: 20040416
  Transmission Date: 20050107
  Serious: Yes (Hospitalization, Disabling)
  Sender: FDA-Public Use
  Company Number: 2004-01627

PATIENT
  Age: 44 Year
  Sex: Female

DRUGS (2)
  1. FERRLECIT [Suspect]
     Indication: IRON DEFICIENCY ANAEMIA
     Dosage: 62.5 MG , SINGLE INFUSION, INTRAVENOUS
     Route: 042
     Dates: start: 20020207, end: 20020207
  2. L-THYROXINE [Concomitant]

REACTIONS (15)
  - ANXIETY [None]
  - ARTHRALGIA [None]
  - ATAXIA [None]
  - BALANCE DISORDER [None]
  - DIZZINESS [None]
  - FALL [None]
  - GAIT DISTURBANCE [None]
  - NECK PAIN [None]
  - NERVOUS SYSTEM DISORDER [None]
  - NORMOCHROMIC NORMOCYTIC ANAEMIA [None]
  - NUCLEAR MAGNETIC RESONANCE IMAGING BRAIN ABNORMAL [None]
  - PARAESTHESIA [None]
  - SLEEP DISORDER [None]
  - SOMATISATION DISORDER [None]
  - TACHYCARDIA [None]
